FAERS Safety Report 8508956-2 (Version None)
Quarter: 2012Q3

REPORT INFORMATION
  Report Type: 
  Country: None (occurrence: None)
  Receive Date: 20120713
  Receipt Date: 20120706
  Transmission Date: 20120928
  Serious: Yes (Other)
  Sender: FDA-Public Use
  Company Number: US-PFIZER INC-2012162725

PATIENT
  Sex: Female
  Weight: 79.365 kg

DRUGS (3)
  1. LYRICA [Suspect]
     Indication: RESTLESS LEGS SYNDROME
     Dosage: 75 MG, AS NEEDED
     Dates: start: 20120101
  2. LYRICA [Suspect]
     Indication: PAIN IN EXTREMITY
  3. LYRICA [Suspect]
     Indication: ARTHRALGIA

REACTIONS (2)
  - VISUAL IMPAIRMENT [None]
  - WEIGHT INCREASED [None]
